FAERS Safety Report 4436231-4 (Version None)
Quarter: 2004Q3

REPORT INFORMATION
  Report Type: 
  Country: None (occurrence: None)
  Receive Date: 20040830
  Receipt Date: 20040602
  Transmission Date: 20050211
  Serious: No
  Sender: FDA-Public Use
  Company Number: US-BRISTOL-MYERS SQUIBB COMPANY-12603312

PATIENT
  Age: 65 Year
  Sex: Male
  Weight: 93 kg

DRUGS (6)
  1. ERBITUX [Suspect]
     Indication: COLON CANCER
     Route: 042
     Dates: start: 20040101, end: 20040101
  2. BENADRYL [Concomitant]
     Indication: PREMEDICATION
     Route: 042
     Dates: start: 20040101, end: 20040101
  3. DECADRON [Concomitant]
     Indication: PREMEDICATION
     Dates: start: 20040101, end: 20040101
  4. TYLENOL [Concomitant]
     Indication: PREMEDICATION
     Dates: start: 20040101, end: 20040101
  5. ZOFRAN [Concomitant]
     Indication: PREMEDICATION
     Dates: start: 20040101, end: 20040101
  6. CAMPTOSAR [Concomitant]

REACTIONS (1)
  - RASH [None]
